FAERS Safety Report 7600817-6 (Version None)
Quarter: 2011Q3

REPORT INFORMATION
  Report Type: 
  Country: None (occurrence: None)
  Receive Date: 20110711
  Receipt Date: 20110628
  Transmission Date: 20111222
  Serious: Yes (Death)
  Sender: FDA-Public Use
  Company Number: GB-ASTRAZENECA-2011SE39014

PATIENT
  Age: 22 Year

DRUGS (3)
  1. METHADONE HCL [Suspect]
     Dosage: 2 DF
  2. QUETIAPINE [Suspect]
     Route: 048
  3. ALPRAZOLAM [Suspect]
     Dosage: 37 TABLETS
     Route: 048

REACTIONS (3)
  - RESPIRATORY DEPRESSION [None]
  - TOXICITY TO VARIOUS AGENTS [None]
  - ACCIDENTAL OVERDOSE [None]
